FAERS Safety Report 25040904 (Version 1)
Quarter: 2025Q1

REPORT INFORMATION
  Report Type: Report from Study
  Country: SA (occurrence: SA)
  Receive Date: 20250305
  Receipt Date: 20250305
  Transmission Date: 20250409
  Serious: Yes (Hospitalization)
  Sender: BIOGEN
  Company Number: SA-BIOGEN-2025BI01301600

PATIENT
  Age: 4 Year
  Sex: Male
  Weight: 16.6 kg

DRUGS (1)
  1. SPINRAZA [Suspect]
     Active Substance: NUSINERSEN
     Indication: Spinal muscular atrophy
     Route: 050
     Dates: start: 20240722

REACTIONS (3)
  - Haematemesis [Recovered/Resolved]
  - Post procedural fever [Not Recovered/Not Resolved]
  - Procedural vomiting [Not Recovered/Not Resolved]

NARRATIVE: CASE EVENT DATE: 20250216
